FAERS Safety Report 7305264-2 (Version None)
Quarter: 2011Q1

REPORT INFORMATION
  Report Type: 
  Country: None (occurrence: None)
  Receive Date: 20110222
  Receipt Date: 20110210
  Transmission Date: 20110831
  Serious: Yes (Hospitalization)
  Sender: FDA-Public Use
  Company Number: US-SANOFI-AVENTIS-2011SA007676

PATIENT
  Age: 74 Year
  Sex: Male
  Weight: 85.9 kg

DRUGS (1)
  1. MULTAQ [Suspect]
     Indication: ATRIAL FIBRILLATION
     Route: 065
     Dates: start: 20110131

REACTIONS (4)
  - OEDEMA [None]
  - DYSPNOEA [None]
  - OLIGURIA [None]
  - RENAL FAILURE ACUTE [None]
